FAERS Safety Report 14535550 (Version 1)
Quarter: 2018Q1

REPORT INFORMATION
  Report Type: Spontaneous
  Country: CA (occurrence: CA)
  Receive Date: 20180215
  Receipt Date: 20180215
  Transmission Date: 20180509
  Serious: Yes (Other)
  Sender: FDA-Public Use
  Company Number: CA-ROCHE-2069147

PATIENT
  Sex: Female

DRUGS (4)
  1. ACTEMRA [Suspect]
     Active Substance: TOCILIZUMAB
     Indication: RHEUMATOID ARTHRITIS
     Route: 042
     Dates: start: 20130627
  2. ATENOLOL. [Concomitant]
     Active Substance: ATENOLOL
  3. METHOTREXATE. [Suspect]
     Active Substance: METHOTREXATE
     Indication: RHEUMATOID ARTHRITIS
     Route: 058
  4. COVERSYL [Concomitant]
     Active Substance: PERINDOPRIL

REACTIONS (16)
  - Joint space narrowing [Unknown]
  - Osteoarthritis [Unknown]
  - Joint dislocation [Unknown]
  - Spinal osteoarthritis [Unknown]
  - Fatigue [Recovering/Resolving]
  - Alanine aminotransferase increased [Recovered/Resolved]
  - C-reactive protein increased [Unknown]
  - Bone density decreased [Unknown]
  - Fall [Unknown]
  - Joint injury [Unknown]
  - Mean cell haemoglobin increased [Unknown]
  - Joint swelling [Unknown]
  - Mean cell volume increased [Unknown]
  - Scoliosis [Unknown]
  - Arthralgia [Unknown]
  - Aspartate aminotransferase increased [Recovered/Resolved]
